FAERS Safety Report 8428761 (Version 4)
Quarter: 2015Q1

REPORT INFORMATION
  Report Type: Spontaneous
  Country: US (occurrence: None)
  Receive Date: 20120215
  Receipt Date: 20150130
  Transmission Date: 20150721
  Serious: Yes (Hospitalization)
  Sender: FDA-Public Use
  Company Number: JPI-P-018674

PATIENT
  Age: 29 Year
  Sex: Female
  Weight: 88.6 kg

DRUGS (6)
  1. ONDANSETRON HYDROCHLORIDE. [Concomitant]
     Active Substance: ONDANSETRON HYDROCHLORIDE
  2. ALBUTEROL (SALBUTAMOL) [Concomitant]
     Active Substance: ALBUTEROL
  3. NUVIGIL [Suspect]
     Active Substance: ARMODAFINIL
     Indication: NARCOLEPSY
     Dosage: UNKNOWN, SINGLE, ORAL
     Route: 048
     Dates: start: 20111020, end: 20111129
  4. TOPIRAMATE. [Concomitant]
     Active Substance: TOPIRAMATE
  5. XYREM [Suspect]
     Active Substance: SODIUM OXYBATE
     Indication: NARCOLEPSY
     Route: 048
     Dates: start: 20111126, end: 20111127
  6. XYREM [Suspect]
     Active Substance: SODIUM OXYBATE
     Indication: CATAPLEXY
     Route: 048
     Dates: start: 20111126, end: 20111127

REACTIONS (9)
  - Sensation of foreign body [None]
  - Choking sensation [None]
  - Dysgeusia [None]
  - Drug hypersensitivity [None]
  - Pharyngeal oedema [None]
  - Upper-airway cough syndrome [None]
  - Anaphylactoid reaction [None]
  - Vomiting [None]
  - Weight decreased [None]

NARRATIVE: CASE EVENT DATE: 20111126
